FAERS Safety Report 18445911 (Version 1)
Quarter: 2020Q4

REPORT INFORMATION
  Report Type: Spontaneous
  Country: US (occurrence: US)
  Receive Date: 20201029
  Receipt Date: 20201029
  Transmission Date: 20210114
  Serious: Yes (Hospitalization, Disabling)
  Sender: FDA-Public Use
  Company Number: None

PATIENT
  Age: 29 Year
  Sex: Female
  Weight: 60.75 kg

DRUGS (6)
  1. CIPROFLOXACIN. [Suspect]
     Active Substance: CIPROFLOXACIN
     Indication: URINARY TRACT INFECTION
     Route: 048
     Dates: start: 20201023, end: 20201023
  2. MAGNESIUM [Concomitant]
     Active Substance: MAGNESIUM
  3. ZYRTEC [Concomitant]
     Active Substance: CETIRIZINE HYDROCHLORIDE
  4. SOLY ISOLFLAVONES [Concomitant]
  5. SULFAMETH/TRIMETHOPRIM [Concomitant]
     Active Substance: SULFAMETHOXAZOLE\TRIMETHOPRIM
  6. TYLENOL [Concomitant]
     Active Substance: ACETAMINOPHEN

REACTIONS (13)
  - Vomiting [None]
  - Asthenia [None]
  - Muscular weakness [None]
  - Insomnia [None]
  - Paraesthesia [None]
  - Dizziness [None]
  - Syncope [None]
  - Gait disturbance [None]
  - Fatigue [None]
  - Contusion [None]
  - Tendonitis [None]
  - Anxiety [None]
  - Tendon disorder [None]

NARRATIVE: CASE EVENT DATE: 20201023
